FAERS Safety Report 12317791 (Version 1)
Quarter: 2016Q2

REPORT INFORMATION
  Report Type: Report from Study
  Country: US (occurrence: US)
  Receive Date: 20160429
  Receipt Date: 20160429
  Transmission Date: 20160815
  Serious: Yes (Hospitalization, Other)
  Sender: FDA-Public Use
  Company Number: US-PFIZER INC-2016232103

PATIENT
  Age: 56 Year
  Sex: Male

DRUGS (1)
  1. NEURONTIN [Suspect]
     Active Substance: GABAPENTIN
     Dosage: UNK

REACTIONS (13)
  - Urinary tract infection [Unknown]
  - Muscle spasticity [Unknown]
  - Asthenia [Unknown]
  - Chest pain [Unknown]
  - Condition aggravated [Unknown]
  - Lethargy [Unknown]
  - Fall [Unknown]
  - Abdominal pain [Unknown]
  - Muscle spasms [Unknown]
  - Urinary retention [Unknown]
  - Pain in extremity [Unknown]
  - Pulmonary embolism [Unknown]
  - Musculoskeletal pain [Unknown]
